FAERS Safety Report 5522668-9 (Version None)
Quarter: 2007Q4

REPORT INFORMATION
  Report Type: 
  Country: None (occurrence: None)
  Receive Date: 20071120
  Receipt Date: 20071113
  Transmission Date: 20080405
  Serious: Yes (Other)
  Sender: FDA-Public Use
  Company Number: US-SHR-US-2007-043371

PATIENT
  Age: 43 Year
  Sex: Female
  Weight: 68.027 kg

DRUGS (4)
  1. CLIMARA [Suspect]
     Indication: HORMONE REPLACEMENT THERAPY
     Dosage: .05 MG/D, WEEKLY
     Route: 062
     Dates: start: 20071009
  2. CLIMARA [Suspect]
     Dosage: .0375 MG/D, WEEKLY
     Route: 062
     Dates: end: 20071112
  3. BACTRIM [Suspect]
     Indication: STAPHYLOCOCCAL INFECTION
  4. CLEOCIN HYDROCHLORIDE [Suspect]
     Indication: STAPHYLOCOCCAL INFECTION

REACTIONS (4)
  - DRUG HYPERSENSITIVITY [None]
  - RASH [None]
  - STAPHYLOCOCCAL INFECTION [None]
  - TONGUE BLACK HAIRY [None]
